FAERS Safety Report 4885638-X (Version None)
Quarter: 2005Q4

REPORT INFORMATION
  Report Type: 
  Country: None (occurrence: None)
  Receive Date: 20051220
  Receipt Date: 20050209
  Transmission Date: 20060501
  Serious: Yes (Other)
  Sender: FDA-Public Use
  Company Number: HQWYE218010FEB05

PATIENT
  Age: 58 Year
  Sex: Male

DRUGS (4)
  1. EFFEXOR XR [Suspect]
     Indication: DEPRESSION
     Dates: start: 19970101
  2. CARDIZEM CD [Concomitant]
  3. AMBIEN [Concomitant]
  4. HYZAAR [Concomitant]

REACTIONS (3)
  - DYSPNOEA [None]
  - PALPITATIONS [None]
  - TACHYCARDIA [None]
